FAERS Safety Report 11458332 (Version 1)
Quarter: 2015Q3

REPORT INFORMATION
  Report Type: Spontaneous
  Country: US (occurrence: US)
  Receive Date: 20150904
  Receipt Date: 20150904
  Transmission Date: 20151125
  Serious: Yes (Other)
  Sender: FDA-Public Use
  Company Number: US-JNJFOC-20150819514

PATIENT
  Age: 61 Year
  Sex: Female
  Weight: 95.26 kg

DRUGS (7)
  1. LASIX [Concomitant]
     Active Substance: FUROSEMIDE
     Indication: HYPERTENSION
     Dosage: BEGAN LASIX 16-17 YEARS AGO
     Route: 048
  2. PERCOCET [Concomitant]
     Active Substance: ACETAMINOPHEN\OXYCODONE HYDROCHLORIDE
     Indication: PAIN MANAGEMENT
     Route: 048
     Dates: start: 2002
  3. DURAGESIC [Suspect]
     Active Substance: FENTANYL
     Indication: FIBROMYALGIA
     Route: 062
  4. DURAGESIC [Suspect]
     Active Substance: FENTANYL
     Indication: ARTHRALGIA
     Route: 062
  5. LASIX [Concomitant]
     Active Substance: FUROSEMIDE
     Indication: LUPUS NEPHRITIS
     Dosage: BEGAN LASIX 16-17 YEARS AGO
     Route: 048
  6. PREMARIN [Concomitant]
     Active Substance: ESTROGENS, CONJUGATED
     Indication: HYSTERECTOMY
     Route: 048
     Dates: start: 1979
  7. ADVAIR HFA [Concomitant]
     Active Substance: FLUTICASONE PROPIONATE\SALMETEROL XINAFOATE
     Indication: CHRONIC OBSTRUCTIVE PULMONARY DISEASE
     Dosage: 250MG OR 500MG TWICE DAILY AS NEEDED
     Route: 048
     Dates: start: 2005

REACTIONS (10)
  - Abasia [Unknown]
  - Drug ineffective [Unknown]
  - Hyperhidrosis [Not Recovered/Not Resolved]
  - Product adhesion issue [Unknown]
  - Product packaging issue [Unknown]
  - Feeling abnormal [Unknown]
  - Malaise [Not Recovered/Not Resolved]
  - Wrong technique in product usage process [Unknown]
  - Pain [Unknown]
  - Product quality issue [Unknown]

NARRATIVE: CASE EVENT DATE: 201504
